FAERS Safety Report 4450783-X (Version None)
Quarter: 2004Q3

REPORT INFORMATION
  Report Type: 
  Country: None (occurrence: None)
  Receive Date: 20040914
  Receipt Date: 20040914
  Transmission Date: 20050211
  Serious: Yes (Other)
  Sender: FDA-Public Use
  Company Number: None

PATIENT
  Age: 5 Year
  Sex: Male
  Weight: 17.1 kg

DRUGS (4)
  1. SINGULAIR [Suspect]
     Indication: ASTHMA
     Dosage: 4 MG   ONCE DAILY   ORAL
     Route: 048
     Dates: start: 20031117, end: 20040907
  2. ZYRTEC [Concomitant]
  3. PROTOPIC [Concomitant]
  4. ALBUTEROL [Concomitant]

REACTIONS (4)
  - ASTHMA [None]
  - CONDITION AGGRAVATED [None]
  - HAEMATURIA [None]
  - POST STREPTOCOCCAL GLOMERULONEPHRITIS [None]
